FAERS Safety Report 4791111-X (Version None)
Quarter: 2005Q4

REPORT INFORMATION
  Report Type: 
  Country: None (occurrence: None)
  Receive Date: 20051007
  Receipt Date: 20050913
  Transmission Date: 20060501
  Serious: Yes (Other)
  Sender: FDA-Public Use
  Company Number: JP-BRISTOL-MYERS SQUIBB COMPANY-13115886

PATIENT
  Age: 57 Year
  Sex: Male

DRUGS (9)
  1. GATIFLO TABS [Suspect]
     Indication: ASTHMA
     Dosage: PRESCRIBED DOSE 400 MG/DAY
     Route: 048
     Dates: start: 20050910, end: 20050910
  2. BROACT [Suspect]
     Indication: ASTHMA
     Dosage: GIVEN ONE DOSE ON 06-AUG-2005 AND ONCE ON 10-SEP-2005
     Route: 042
     Dates: start: 20050806, end: 20050910
  3. KIPRESS [Concomitant]
     Route: 048
     Dates: start: 20050910, end: 20050910
  4. MUCOSAL [Concomitant]
     Route: 048
     Dates: start: 20050910, end: 20050910
  5. HOKUNALIN [Concomitant]
     Route: 062
     Dates: start: 20050910, end: 20050910
  6. QVAR 40 [Concomitant]
     Route: 055
     Dates: start: 20050910, end: 20050910
  7. SOLU-CORTEF [Concomitant]
     Dosage: ONE DOSE GIVEN ON 06-AUG-2005, 08-AUG-2005 AND 10-SEP-2005
     Route: 042
     Dates: start: 20050806, end: 20050910
  8. SALINE [Concomitant]
     Route: 042
     Dates: start: 20050910, end: 20050910
  9. NEOPHYLLIN [Concomitant]
     Route: 042
     Dates: start: 20050910, end: 20050910

REACTIONS (6)
  - FACE OEDEMA [None]
  - FLUSHING [None]
  - GENERALISED ERYTHEMA [None]
  - PRURITUS GENERALISED [None]
  - RASH [None]
  - SWELLING [None]
